FAERS Safety Report 7599604-7 (Version None)
Quarter: 2011Q3

REPORT INFORMATION
  Report Type: 
  Country: None (occurrence: None)
  Receive Date: 20110711
  Receipt Date: 20101229
  Transmission Date: 20111222
  Serious: Yes (Death, Other)
  Sender: FDA-Public Use
  Company Number: US-BAYER-200940253NA

PATIENT
  Age: 45 Year
  Sex: Male
  Weight: 90.703 kg

DRUGS (17)
  1. DIGOXIN [Concomitant]
     Indication: PRODUCT USED FOR UNKNOWN INDICATION
     Route: 065
  2. PAVULON [Concomitant]
     Dosage: UNK
     Route: 042
     Dates: start: 19950422
  3. TRASYLOL [Suspect]
     Indication: MITRAL VALVE REPLACEMENT
     Dosage: UNK
     Route: 042
     Dates: start: 19950422
  4. COUMADIN [Concomitant]
     Indication: PRODUCT USED FOR UNKNOWN INDICATION
     Route: 065
  5. LISINOPRIL [Concomitant]
     Indication: PRODUCT USED FOR UNKNOWN INDICATION
     Route: 065
  6. PLASMALYTE [GLUCOSE,POTASSIUM CHLORIDE] [Concomitant]
     Dosage: 75 MEQ, PRIME
     Route: 042
     Dates: start: 19950422
  7. NIPRIDE [Concomitant]
     Dosage: UNK
     Route: 042
     Dates: start: 19950422
  8. ROCEPHIN [Concomitant]
     Dosage: UNK
     Route: 042
     Dates: start: 19950422
  9. KEFZOL [Concomitant]
     Dosage: 1 G, UNK
     Route: 042
     Dates: start: 19950422
  10. HEPARIN [Concomitant]
     Dosage: 30,000 UNITS PER 1 LITER NORMAL SALINE (PRIME)
     Dates: start: 19950422
  11. FENTANYL [Concomitant]
     Dosage: UNK
     Route: 042
     Dates: start: 19950422
  12. DOBUTAMINE HCL [Concomitant]
     Dosage: UNK
     Route: 042
     Dates: start: 19950422
  13. HEPARIN [Concomitant]
     Dosage: 31000 U, UNK
     Route: 042
     Dates: start: 19950422
  14. SODIUM BICARBONATE [Concomitant]
     Dosage: 75 MEQ, PRIME
     Route: 042
     Dates: start: 19950422
  15. VERSED [Concomitant]
     Dosage: UNK
     Route: 042
     Dates: start: 19950422
  16. PROTAMINE SULFATE [Concomitant]
     Dosage: 500 MG, UNK
     Route: 042
     Dates: start: 19950422
  17. POTASSIUM CHLORIDE [Concomitant]
     Dosage: 64 MEQ, PRIME
     Route: 042
     Dates: start: 19950422

REACTIONS (13)
  - DEATH [None]
  - RENAL FAILURE [None]
  - EMOTIONAL DISTRESS [None]
  - FEAR [None]
  - ANHEDONIA [None]
  - RENAL IMPAIRMENT [None]
  - MULTI-ORGAN FAILURE [None]
  - RENAL INJURY [None]
  - UNEVALUABLE EVENT [None]
  - INJURY [None]
  - ANXIETY [None]
  - PAIN [None]
  - STRESS [None]
